FAERS Safety Report 21831187 (Version 1)
Quarter: 2023Q1

REPORT INFORMATION
  Report Type: Spontaneous
  Country: US (occurrence: None)
  Receive Date: 20230106
  Receipt Date: 20230106
  Transmission Date: 20230418
  Serious: Yes (Death)
  Sender: FDA-Public Use
  Company Number: None

PATIENT
  Age: 6 Year
  Sex: Female

DRUGS (1)
  1. NEULASTA [Suspect]
     Active Substance: PEGFILGRASTIM
     Dosage: 6MG/0. OTHER   SUBCUTANEOUS
     Route: 058
     Dates: start: 2022, end: 2022

REACTIONS (1)
  - Death [None]

NARRATIVE: CASE EVENT DATE: 20220614
